FAERS Safety Report 8895337 (Version 1)
Quarter: 2012Q4

REPORT INFORMATION
  Report Type: 
  Country: SE (occurrence: SE)
  Receive Date: 20121108
  Receipt Date: 20121108
  Transmission Date: 20130627
  Serious: Yes (Hospitalization)
  Sender: FDA-Public Use
  Company Number: SE-PFIZER INC-2012274990

PATIENT
  Age: 86 Year
  Sex: Female
  Weight: 79 kg

DRUGS (7)
  1. GENOTROPIN [Suspect]
     Dosage: 0.3 mg, 1x/day, 7 injections/week
     Route: 058
     Dates: start: 20040310
  2. LEVOTHYROXINE [Concomitant]
     Indication: THYROID DISORDER
     Dosage: UNK
     Dates: start: 19741001
  3. OVESTERIN [Concomitant]
     Indication: LUTEINISING HORMONE DEFICIENCY
     Dosage: UNK
     Dates: start: 19910601
  4. OVESTERIN [Concomitant]
     Indication: FOLLICLE-STIMULATING HORMONE DEFICIENCY
  5. ACETYLSALICYLIC ACID [Concomitant]
     Indication: CARDIOVASCULAR DISORDER
     Dosage: UNK
     Dates: start: 19940601
  6. LUNELAX [Concomitant]
     Indication: OBESITY
     Dosage: UNK
     Dates: start: 19960101
  7. KALCIUM D-VITAMIN [Concomitant]
     Indication: OSTEOPOROSIS
     Dosage: UNK
     Dates: start: 20000308

REACTIONS (3)
  - Accident [Unknown]
  - Skeletal injury [Unknown]
  - Limb injury [Unknown]
